FAERS Safety Report 8007822-9 (Version None)
Quarter: 2011Q4

REPORT INFORMATION
  Report Type: 
  Country: None (occurrence: None)
  Receive Date: 20111227
  Receipt Date: 20111219
  Transmission Date: 20120403
  Serious: Yes (Hospitalization)
  Sender: FDA-Public Use
  Company Number: GB-B.I. PHARMACEUTICALS,INC./RIDGEFIELD-2011-UK-01382UK

PATIENT
  Sex: Female

DRUGS (8)
  1. BISOPROLOL FUMARATE [Concomitant]
  2. SIMAVASTATIN [Concomitant]
  3. PRADAXA [Suspect]
     Indication: CEREBROVASCULAR ACCIDENT PROPHYLAXIS
     Dosage: 220 MG
     Route: 048
     Dates: start: 20111117
  4. GALANTANIN [Concomitant]
  5. PREGABALIN [Concomitant]
  6. DIGOXIN [Concomitant]
  7. METAZEPIN [Concomitant]
  8. PRADAXA [Suspect]
     Indication: ATRIAL FIBRILLATION
     Dosage: 300 MG
     Route: 048
     Dates: start: 20111206

REACTIONS (4)
  - FALL [None]
  - DRUG INEFFECTIVE [None]
  - CEREBRAL INFARCTION [None]
  - URINARY TRACT INFECTION [None]
